FAERS Safety Report 10497257 (Version 7)
Quarter: 2015Q2

REPORT INFORMATION
  Report Type: Report from Study
  Country: US (occurrence: US)
  Receive Date: 20141006
  Receipt Date: 20150509
  Transmission Date: 20150821
  Serious: Yes (Hospitalization)
  Sender: FDA-Public Use
  Company Number: US-ROCHE-1466608

PATIENT
  Age: 43 Year
  Sex: Female
  Weight: 107.5 kg

DRUGS (14)
  1. BEVACIZUMAB [Suspect]
     Active Substance: BEVACIZUMAB
     Indication: NEOPLASM
     Dosage: MOST RECENT DOSE PRIOR TO AE ONSET WAS 1097 MG ON 17/SEP/2014 AND ON 15/OCT/2014
     Route: 042
     Dates: start: 20131226
  2. FLUOROURACIL. [Suspect]
     Active Substance: FLUOROURACIL
     Indication: NEOPLASM MALIGNANT
     Dosage: LAST DOSE PRIOT TO SAE: 17 SEP 2014, LAST DOSE: 3695 MG AND ON 15/OCT/2014
     Route: 042
     Dates: start: 20131211
  3. MPDL3280A [Suspect]
     Active Substance: INVESTIGATIONAL PRODUCT
     Indication: NEOPLASM
     Dosage: MOST RECENT DOSE PRIOR TO AE ONSET WAS 800 MG ON 17/SEP/2014 AND ON 15/OCT/2014
     Route: 042
     Dates: start: 20131226
  4. FLUOROURACIL. [Suspect]
     Active Substance: FLUOROURACIL
     Indication: NEOPLASM MALIGNANT
     Dosage: MOST RECENT DOSE ON 26/DEC/2013, 925 MG
     Route: 040
     Dates: start: 20131211
  5. LORAZEPAM. [Concomitant]
     Active Substance: LORAZEPAM
     Indication: ANXIETY
     Route: 048
     Dates: start: 20131218
  6. AMLODIPINE [Concomitant]
     Active Substance: AMLODIPINE BESYLATE
     Indication: HYPERTENSION
     Route: 048
     Dates: start: 20140623
  7. CAPECITABINE. [Suspect]
     Active Substance: CAPECITABINE
     Indication: NEOPLASM
     Dosage: MOST RECENT DOSE PRIOR TO AE ONSET WAS 2500 MG ON 10/SEP/2014.
     Route: 048
     Dates: start: 20140720
  8. PREDNISONE. [Concomitant]
     Active Substance: PREDNISONE
     Indication: IODINE ALLERGY
     Route: 048
  9. LEUCOVORIN CALCIUM. [Suspect]
     Active Substance: LEUCOVORIN CALCIUM
     Indication: NEOPLASM
     Dosage: MOST RECENT DOSE ON 14/MAY/2014, 924 MG AND ON 15/OCT/2014
     Route: 042
     Dates: start: 20131211
  10. ONDANSETRON [Concomitant]
     Active Substance: ONDANSETRON
     Indication: NAUSEA
     Route: 048
     Dates: start: 20131211
  11. PROCHLORPERAZINE. [Concomitant]
     Active Substance: PROCHLORPERAZINE
     Indication: NAUSEA
     Route: 048
     Dates: start: 20131211
  12. ROXICODONE [Concomitant]
     Active Substance: OXYCODONE HYDROCHLORIDE
     Indication: ABDOMINAL PAIN UPPER
     Route: 048
     Dates: start: 20140205
  13. ZOLPIDEM [Concomitant]
     Active Substance: ZOLPIDEM\ZOLPIDEM TARTRATE
     Indication: INSOMNIA
     Route: 048
     Dates: start: 20140917
  14. OXALIPLATIN. [Suspect]
     Active Substance: OXALIPLATIN
     Indication: NEOPLASM
     Dosage: MOST RECENT DOSE ON 26/MAR/2014 115 MG
     Route: 042
     Dates: start: 20131211

REACTIONS (2)
  - Proctitis [Recovered/Resolved]
  - Proctitis [Recovered/Resolved]

NARRATIVE: CASE EVENT DATE: 20140923
